FAERS Safety Report 8048167-0 (Version None)
Quarter: 2012Q1

REPORT INFORMATION
  Report Type: 
  Country: None (occurrence: None)
  Receive Date: 20120113
  Receipt Date: 20120113
  Transmission Date: 20120608
  Serious: Yes (Other)
  Sender: FDA-Public Use
  Company Number: None

PATIENT
  Sex: Male

DRUGS (1)
  1. TYSABRI [Suspect]
     Indication: MULTIPLE SCLEROSIS
     Dosage: TYSABRI 300MG EVERY 4 WEEK INTRAVENOUSLY
     Route: 042
     Dates: start: 20090106, end: 20111201

REACTIONS (1)
  - DRUG HYPERSENSITIVITY [None]
